FAERS Safety Report 24562167 (Version 1)
Quarter: 2024Q4

REPORT INFORMATION
  Report Type: Spontaneous
  Country: CN (occurrence: CN)
  Receive Date: 20241029
  Receipt Date: 20241029
  Transmission Date: 20250114
  Serious: Yes (Other)
  Sender: MERCK
  Company Number: CN-009507513-2410CHN011682

PATIENT
  Age: 59 Year
  Sex: Female
  Weight: 59 kg

DRUGS (2)
  1. CANCIDAS [Suspect]
     Active Substance: CASPOFUNGIN ACETATE
     Indication: Symptomatic treatment
     Dosage: 50 MG, ONCE DAILY
     Route: 041
     Dates: start: 20240801, end: 20240808
  2. MEROPENEM [Concomitant]
     Active Substance: MEROPENEM
     Indication: Symptomatic treatment
     Dosage: 1 G, THREE TIME PER DAY
     Route: 041
     Dates: start: 20240801, end: 20240813

REACTIONS (2)
  - Hallucination, auditory [Recovering/Resolving]
  - Lethargy [Unknown]

NARRATIVE: CASE EVENT DATE: 20240802
